FAERS Safety Report 17570617 (Version 1)
Quarter: 2020Q1

REPORT INFORMATION
  Report Type: Spontaneous
  Country: ES (occurrence: ES)
  Receive Date: 20200323
  Receipt Date: 20200323
  Transmission Date: 20200409
  Serious: Yes (Other)
  Sender: FDA-Public Use
  Company Number: ES-AUROBINDO-AUR-APL-2020-015359

PATIENT
  Age: 67 Year
  Sex: Female

DRUGS (2)
  1. SERTRALINE [Interacting]
     Active Substance: SERTRALINE HYDROCHLORIDE
     Indication: PRODUCT USED FOR UNKNOWN INDICATION
     Dosage: 50 MILLIGRAM, ONCE A DAY
     Route: 048
     Dates: start: 20200207, end: 20200223
  2. LINEZOLID. [Suspect]
     Active Substance: LINEZOLID
     Indication: LIVER ABSCESS
     Dosage: 1200 MILLIGRAM, DAILY
     Route: 048
     Dates: start: 20200217, end: 20200228

REACTIONS (3)
  - Somnolence [Unknown]
  - Hyperhidrosis [Unknown]
  - Confusional state [Unknown]

NARRATIVE: CASE EVENT DATE: 20200222
